FAERS Safety Report 7643737-3 (Version None)
Quarter: 2011Q3

REPORT INFORMATION
  Report Type: 
  Country: None (occurrence: None)
  Receive Date: 20110722
  Receipt Date: 20110718
  Transmission Date: 20111222
  Serious: Yes (Other)
  Sender: FDA-Public Use
  Company Number: TPA2011A03754

PATIENT
  Age: 59 Year
  Sex: Female
  Weight: 58.9676 kg

DRUGS (7)
  1. VYTORIN [Concomitant]
  2. VENLAFAXINE [Concomitant]
  3. ACTONEL [Concomitant]
  4. RAMIPRIL [Concomitant]
  5. ACTOPLUS MET [Suspect]
     Indication: TYPE 2 DIABETES MELLITUS
     Dosage: 2 IN 1 D, PER ORAL
     Route: 048
     Dates: start: 20060627, end: 20110705
  6. BCG (BCG VACCINE) [Suspect]
     Indication: BLADDER CANCER
     Dosage: OTHER
     Route: 050
  7. MULTIVITAMIN [Concomitant]

REACTIONS (4)
  - WEIGHT DECREASED [None]
  - BLADDER CANCER STAGE 0, WITH CANCER IN SITU [None]
  - INFLUENZA LIKE ILLNESS [None]
  - DIZZINESS [None]
